FAERS Safety Report 10933448 (Version 2)
Quarter: 2015Q2

REPORT INFORMATION
  Report Type: Report from Study
  Country: US (occurrence: US)
  Receive Date: 20150320
  Receipt Date: 20150619
  Transmission Date: 20150821
  Serious: No
  Sender: FDA-Public Use
  Company Number: US-ABBVIE-15P-163-1362929-00

PATIENT
  Age: 56 Year
  Sex: Female
  Weight: 84.9 kg

DRUGS (6)
  1. BUPROPION [Concomitant]
     Active Substance: BUPROPION
     Indication: AFFECTIVE DISORDER
  2. RIBAVIRIN. [Concomitant]
     Active Substance: RIBAVIRIN
     Indication: HEPATITIS C
     Dates: start: 20150316
  3. DICLOFENAC [Concomitant]
     Active Substance: DICLOFENAC
     Indication: PAIN IN EXTREMITY
  4. CALCIUM [Concomitant]
     Active Substance: CALCIUM
     Indication: VITAMIN SUPPLEMENTATION
  5. VIEKIRA PAK [Suspect]
     Active Substance: DASABUVIR\OMBITASVIR\PARITAPREVIR\RITONAVIR
     Indication: HEPATITIS C
     Route: 048
     Dates: start: 20150216
  6. EST ESTRGN METHTEST [Concomitant]
     Indication: HORMONE REPLACEMENT THERAPY

REACTIONS (2)
  - Back pain [Recovering/Resolving]
  - Hypoaesthesia [Recovering/Resolving]

NARRATIVE: CASE EVENT DATE: 201502
